FAERS Safety Report 4790991-1 (Version None)
Quarter: 2005Q4

REPORT INFORMATION
  Report Type: 
  Country: None (occurrence: None)
  Receive Date: 20051007
  Receipt Date: 20050928
  Transmission Date: 20060501
  Serious: Yes (Other)
  Sender: FDA-Public Use
  Company Number: 2005SE05501

PATIENT
  Sex: Male

DRUGS (2)
  1. AMIAS [Suspect]
     Indication: HYPERTENSION
     Route: 065
     Dates: start: 19970101, end: 20050101
  2. AMIAS [Suspect]
     Route: 065
     Dates: start: 20050101

REACTIONS (1)
  - ARRHYTHMIA [None]
